FAERS Safety Report 10179280 (Version 2)
Quarter: 2014Q2

REPORT INFORMATION
  Report Type: Spontaneous
  Country: DK (occurrence: DK)
  Receive Date: 20140519
  Receipt Date: 20140519
  Transmission Date: 20141212
  Serious: Yes (Other)
  Sender: FDA-Public Use
  Company Number: CHPA2014DK002621

PATIENT
  Sex: Female

DRUGS (1)
  1. NICOTINELL COATED GUM 2 MG MINT [Suspect]
     Indication: SMOKING CESSATION THERAPY
     Dosage: UNK DF, PRN, APPROXIMATELY 20 PIECES PER DAY
     Route: 048

REACTIONS (1)
  - Dependence [Not Recovered/Not Resolved]
